FAERS Safety Report 6080783-8 (Version None)
Quarter: 2009Q1

REPORT INFORMATION
  Report Type: 
  Country: None (occurrence: None)
  Receive Date: 20090217
  Receipt Date: 20090205
  Transmission Date: 20090719
  Serious: Yes (Hospitalization)
  Sender: FDA-Public Use
  Company Number: US-ELI_LILLY_AND_COMPANY-US200902001455

PATIENT
  Sex: Male
  Weight: 90.703 kg

DRUGS (2)
  1. ZYPREXA [Suspect]
     Indication: MENTAL DISORDER
     Dates: start: 20000101, end: 20010101
  2. ZYPREXA [Suspect]
     Dates: start: 20010101, end: 20050101

REACTIONS (3)
  - COMPLICATIONS OF TRANSPLANT SURGERY [None]
  - HEPATIC FAILURE [None]
  - LIVER TRANSPLANT [None]
